FAERS Safety Report 5609613-2 (Version None)
Quarter: 2008Q1

REPORT INFORMATION
  Report Type: 
  Country: None (occurrence: None)
  Receive Date: 20080131
  Receipt Date: 20080128
  Transmission Date: 20080703
  Serious: Yes (Other)
  Sender: FDA-Public Use
  Company Number: A0705573A

PATIENT
  Age: 67 Year
  Sex: Female

DRUGS (7)
  1. ADVAIR DISKUS 100/50 [Suspect]
     Indication: CHRONIC OBSTRUCTIVE PULMONARY DISEASE
     Dosage: 1PUFF TWICE PER DAY
     Route: 055
     Dates: start: 20070701
  2. NASONEX [Concomitant]
  3. MUCINEX [Concomitant]
  4. BENICAR [Concomitant]
  5. NEXIUM [Concomitant]
  6. ALBUTEROL [Concomitant]
  7. EYE DROPS [Concomitant]

REACTIONS (3)
  - INCREASED UPPER AIRWAY SECRETION [None]
  - PHARYNGOLARYNGEAL PAIN [None]
  - PNEUMONIA [None]
